FAERS Safety Report 6594478-5 (Version None)
Quarter: 2010Q1

REPORT INFORMATION
  Report Type: 
  Country: None (occurrence: None)
  Receive Date: 20100222
  Receipt Date: 20100119
  Transmission Date: 20100710
  Serious: No
  Sender: FDA-Public Use
  Company Number: US-BAYER-201011013BCC

PATIENT
  Age: 58 Year
  Sex: Female
  Weight: 111 kg

DRUGS (8)
  1. ALEVE [Suspect]
     Indication: ARTHRALGIA
     Dosage: TOTAL DAILY DOSE: 440 MG  UNIT DOSE: 220 MG
     Route: 048
     Dates: start: 20100118
  2. MOTRIN [Concomitant]
     Dosage: TOTAL DAILY DOSE: 3 DF  UNIT DOSE: 1 DF
     Route: 065
  3. LEVOXYL [Concomitant]
     Dosage: TOTAL DAILY DOSE: 125 MG  UNIT DOSE: 125 MG
     Route: 065
  4. NEXIUM [Concomitant]
     Dosage: TOTAL DAILY DOSE: 40 MG  UNIT DOSE: 40 MG
     Route: 065
  5. WOMEN'S CENTRUM MULTIVITAMIN [Concomitant]
     Route: 065
  6. VITAMIN D [Concomitant]
     Dosage: TOTAL DAILY DOSE: 1000 MG  UNIT DOSE: 1000 MG
     Route: 065
  7. LEXAPRO [Concomitant]
     Dosage: TOTAL DAILY DOSE: 20 MG  UNIT DOSE: 20 MG
     Route: 065
  8. ZANTAC [Concomitant]
     Dosage: TOTAL DAILY DOSE: 175 MG  UNIT DOSE: 175 MG
     Route: 065

REACTIONS (1)
  - DIZZINESS [None]
